FAERS Safety Report 8118693-4 (Version None)
Quarter: 2012Q1

REPORT INFORMATION
  Report Type: 
  Country: None (occurrence: None)
  Receive Date: 20120202
  Receipt Date: 20120126
  Transmission Date: 20120608
  Serious: Yes (Hospitalization)
  Sender: FDA-Public Use
  Company Number: ACO_29188_2012

PATIENT
  Sex: Female

DRUGS (1)
  1. AMPYRA [Suspect]
     Indication: PRODUCT USED FOR UNKNOWN INDICATION

REACTIONS (4)
  - DEHYDRATION [None]
  - ENCEPHALOPATHY [None]
  - RENAL DISORDER [None]
  - GRAND MAL CONVULSION [None]
